FAERS Safety Report 12190233 (Version 1)
Quarter: 2016Q1

REPORT INFORMATION
  Report Type: Spontaneous
  Country: US (occurrence: US)
  Receive Date: 20160318
  Receipt Date: 20160318
  Transmission Date: 20160526
  Serious: Yes (Hospitalization)
  Sender: FDA-Public Use
  Company Number: US-TARO PHARMACEUTICALS USA.,INC-2016SUN00175

PATIENT
  Age: 53 Year
  Sex: Male

DRUGS (6)
  1. GLYBURIDE. [Concomitant]
     Active Substance: GLYBURIDE
  2. ASPIRIN. [Concomitant]
     Active Substance: ASPIRIN
  3. METFORMIN [Concomitant]
     Active Substance: METFORMIN HYDROCHLORIDE
  4. PRASURGREL [Concomitant]
  5. METOPROLOL. [Concomitant]
     Active Substance: METOPROLOL
  6. CLOMIPRAMINE HYDROCHLORIDE. [Suspect]
     Active Substance: CLOMIPRAMINE HYDROCHLORIDE
     Indication: PRODUCT USED FOR UNKNOWN INDICATION
     Dosage: UNK
     Route: 065

REACTIONS (10)
  - Tachycardia [Recovering/Resolving]
  - Generalised tonic-clonic seizure [Unknown]
  - Overdose [Recovering/Resolving]
  - Mental status changes [Unknown]
  - Electrocardiogram QRS complex prolonged [Recovering/Resolving]
  - Bezoar [Unknown]
  - Dysarthria [Unknown]
  - Confusional state [Unknown]
  - Depressed level of consciousness [Unknown]
  - Vomiting [Unknown]
